FAERS Safety Report 12875767 (Version 4)
Quarter: 2019Q3

REPORT INFORMATION
  Report Type: Spontaneous
  Country: IT (occurrence: IT)
  Receive Date: 20161024
  Receipt Date: 20190819
  Transmission Date: 20191004
  Serious: Yes (Other)
  Sender: FDA-Public Use
  Company Number: IT-TEVA-700008ACC

PATIENT
  Sex: Male
  Weight: 2.28 kg

DRUGS (12)
  1. NIFEDIPINE. [Suspect]
     Active Substance: NIFEDIPINE
     Indication: HYPERTENSION
     Dosage: 20 MILLIGRAM DAILY;
     Route: 064
  2. SPIRONOLACTONE. [Suspect]
     Active Substance: SPIRONOLACTONE
     Dosage: 100 MILLIGRAM DAILY;
     Route: 064
  3. NIFEDIPINE. [Suspect]
     Active Substance: NIFEDIPINE
     Indication: PRIMARY HYPERALDOSTERONISM
     Dosage: 120 MILLIGRAM DAILY;
     Route: 064
  4. POTASSIUM CHLORIDE. [Suspect]
     Active Substance: POTASSIUM CHLORIDE
     Dosage: 461 MILLIEQUIVALENTS DAILY; 461 MEQ
     Route: 064
  5. POTASSIUM CHLORIDE. [Suspect]
     Active Substance: POTASSIUM CHLORIDE
     Dosage: 24 MILLIEQUIVALENTS DAILY; 8 MEQ
     Route: 064
  6. EPLERENONE. [Suspect]
     Active Substance: EPLERENONE
     Dosage: 50 MILLIGRAM DAILY;
     Route: 064
  7. MAGNESIUM SULFATE. [Suspect]
     Active Substance: MAGNESIUM SULFATE
     Indication: PRODUCT USED FOR UNKNOWN INDICATION
     Route: 064
  8. SODIUM CHLORIDE. [Suspect]
     Active Substance: SODIUM CHLORIDE
     Route: 064
  9. EPLERENONE. [Suspect]
     Active Substance: EPLERENONE
     Indication: PRIMARY HYPERALDOSTERONISM
     Dosage: 100 MILLIGRAM DAILY;
     Route: 064
  10. POTASSIUM CHLORIDE. [Suspect]
     Active Substance: POTASSIUM CHLORIDE
     Indication: PRIMARY HYPERALDOSTERONISM
     Dosage: 160 MEQ
     Route: 064
  11. POTASSIUM CHLORIDE. [Suspect]
     Active Substance: POTASSIUM CHLORIDE
     Dosage: 80 MEQ, DAILY
     Route: 064
  12. METHYLDOPA. [Suspect]
     Active Substance: METHYLDOPA
     Indication: HYPERTENSION
     Dosage: 1500 MILLIGRAM DAILY;
     Route: 064

REACTIONS (4)
  - Premature baby [Unknown]
  - Foetal exposure during pregnancy [Unknown]
  - Low birth weight baby [Unknown]
  - Apgar score low [Unknown]
